FAERS Safety Report 15400733 (Version 1)
Quarter: 2018Q3

REPORT INFORMATION
  Report Type: Spontaneous
  Country: GB (occurrence: GB)
  Receive Date: 20180919
  Receipt Date: 20180919
  Transmission Date: 20181010
  Serious: Yes (Other)
  Sender: FDA-Public Use
  Company Number: GB-HIKMA PHARMACEUTICALS USA INC.-GB-H14001-18-07406

PATIENT
  Age: 90 Year
  Sex: Female
  Weight: 42 kg

DRUGS (2)
  1. CLARITHROMYCIN. [Suspect]
     Active Substance: CLARITHROMYCIN
     Indication: LOWER RESPIRATORY TRACT INFECTION
     Dosage: 7 DAY COURSE
  2. CO?AMOXICLAV [Suspect]
     Active Substance: AMOXICILLIN\CLAVULANATE POTASSIUM
     Indication: LOWER RESPIRATORY TRACT INFECTION
     Dosage: AMOXICILLIN 500MG AND CLAVULANIC ACID 125MG. 7 DAY COURSE

REACTIONS (11)
  - Fatigue [Not Recovered/Not Resolved]
  - Dry mouth [Not Recovered/Not Resolved]
  - Hypersensitivity [Unknown]
  - Chapped lips [Unknown]
  - Lip exfoliation [Unknown]
  - Peripheral swelling [Unknown]
  - Rash erythematous [Recovering/Resolving]
  - Pruritus generalised [Unknown]
  - Lip swelling [Unknown]
  - Joint swelling [Unknown]
  - Swollen tongue [Unknown]
